FAERS Safety Report 9841213 (Version 1)
Quarter: 2013Q4

REPORT INFORMATION
  Report Type: Spontaneous
  Country: US (occurrence: None)
  Receive Date: 20131219
  Receipt Date: 20131219
  Transmission Date: 20140711
  Serious: Yes (Other)
  Sender: FDA-Public Use
  Company Number: 163-20785-11013041

PATIENT
  Age: 78 Year
  Sex: Female
  Weight: 58.1 kg

DRUGS (13)
  1. THALOMID [Suspect]
     Indication: PLASMA CELL MYELOMA
     Dates: start: 20101101, end: 20101113
  2. MELPHALAN (MELPHALAN) (UNKNOWN) [Concomitant]
  3. PREDNISONE (PREDNISONE) (UNKNOWN) [Concomitant]
  4. ACYCLOVIR (ACICLOVIR) (UNKNOWN) [Concomitant]
  5. AMBIEN (ZOLPIDEM TARTRATE) (UNKNOWN) [Concomitant]
  6. ASPIRIN (ACETYLSALICYLIC ACID) (UNKNOWN) (ACETYLSALICYLIC ACID) [Concomitant]
  7. IMODIUM AD (LOPERAMIDE HYDROCHLORIDE) (TABLETS) [Concomitant]
  8. METOPROLOL (METOPROLOL) (UNKNOWN) [Concomitant]
  9. NORVASC (AMLODIPINE BESILATE) (UNKNOWN) [Concomitant]
  10. PRAVACHOL (PRAVASTATIN SODIUM) (UNKNOWN) [Concomitant]
  11. PRILOSEC (OMEPRAZOLE) (UNKNOWN) [Concomitant]
  12. VITAMIN D (ERGOCALCIFEROL) (UNKNOWN) [Concomitant]
  13. TYLENOL EXTRA STRENGTH (PARACETAMOL) (UNKNOWN) [Concomitant]

REACTIONS (4)
  - Drug hypersensitivity [None]
  - Dyspnoea [None]
  - Oedema [None]
  - Rash [None]
